FAERS Safety Report 14647116 (Version 1)
Quarter: 2018Q1

REPORT INFORMATION
  Report Type: Report from Study
  Country: IT (occurrence: IT)
  Receive Date: 20180316
  Receipt Date: 20180316
  Transmission Date: 20180509
  Serious: Yes (Other)
  Sender: FDA-Public Use
  Company Number: IT-ACCORD-064588

PATIENT
  Age: 63 Year
  Sex: Female
  Weight: 60 kg

DRUGS (5)
  1. TACHIDOL - AZIENDE CHIMICHE RIUNITE ANGELINI FRANCESCO ACRAF SPA [Concomitant]
     Active Substance: ACETAMINOPHEN\CODEINE PHOSPHATE
     Route: 048
  2. CAPECITABINA ACCORD [Suspect]
     Active Substance: CAPECITABINE
     Indication: BREAST CANCER
     Route: 048
     Dates: start: 20161206, end: 20170117
  3. NAVELBINE [Suspect]
     Active Substance: VINORELBINE TARTRATE
     Indication: BREAST CANCER
     Route: 048
     Dates: start: 20161206, end: 20170322
  4. PANTOPRAZOLE [Concomitant]
     Active Substance: PANTOPRAZOLE
     Route: 048
  5. DELTACORTENE - BRUNO FARMACEUTICI S.P.A. [Concomitant]
     Active Substance: PREDNISONE
     Indication: SCLERODERMA
     Route: 048

REACTIONS (1)
  - Extremity necrosis [Recovering/Resolving]

NARRATIVE: CASE EVENT DATE: 20170117
